FAERS Safety Report 8613976 (Version 1)
Quarter: 2020Q3

REPORT INFORMATION
  Report Type: Spontaneous
  Country: US (occurrence: None)
  Receive Date: 20120601
  Receipt Date: 20120601
  Transmission Date: 20201105
  Serious: Yes (Other)
  Sender: FDA-Public Use
  Company Number: 1295348

PATIENT
  Age: 55 Year
  Sex: Female
  Weight: 73 kg

DRUGS (19)
  1. FENTANYL CITRATE. [Suspect]
     Active Substance: FENTANYL CITRATE
     Indication: ANAESTHESIA
     Dosage: 200 UG
     Route: 042
     Dates: start: 20120426
  2. UNSPECIFIED INGREDIENT [Suspect]
     Active Substance: UNSPECIFIED INGREDIENT
     Indication: COMPLICATIONS OF TRANSPLANTED KIDNEY
     Dosage: 600 MH/KG, TOTAL DOSE,
     Route: 042
     Dates: start: 20120426, end: 20120426
  3. LIPITOR [Concomitant]
     Active Substance: ATORVASTATIN CALCIUM
  4. (BICARBONATE) [Concomitant]
  5. CEFAZOLIN [Concomitant]
     Active Substance: CEFAZOLIN
  6. MANNITOL. [Concomitant]
     Active Substance: MANNITOL
  7. LISINOPRIL. [Concomitant]
     Active Substance: LISINOPRIL
  8. FUROSEMIDE. [Concomitant]
     Active Substance: FUROSEMIDE
  9. PROPOFOL. [Suspect]
     Active Substance: PROPOFOL
     Indication: ANAESTHESIA
     Dosage: 120 MG
     Route: 042
     Dates: start: 20120426
  10. MORPHINE SULFATE. [Suspect]
     Active Substance: MORPHINE SULFATE
     Indication: ANAESTHESIA
     Dosage: 10 MG
     Route: 042
     Dates: start: 20120426
  11. EPHEDRINE. [Suspect]
     Active Substance: EPHEDRINE
     Indication: ANAESTHESIA
     Dosage: 5 MG
     Route: 042
     Dates: start: 20120426
  12. MIDAZOLAM HYDROCHLORIDE. [Suspect]
     Active Substance: MIDAZOLAM HYDROCHLORIDE
     Indication: ANAESTHESIA
     Dosage: 2 MG
     Route: 042
     Dates: start: 20120426
  13. DESFLURANE. [Suspect]
     Active Substance: DESFLURANE
     Indication: ANAESTHESIA
     Dosage: 1 DF
     Route: 055
     Dates: start: 20120426
  14. HYDROCHLOROTHIAZIDE. [Concomitant]
     Active Substance: HYDROCHLOROTHIAZIDE
  15. ONDANSETRON [Concomitant]
     Active Substance: ONDANSETRON
  16. ROCURONIUM BROMIDE. [Suspect]
     Active Substance: ROCURONIUM BROMIDE
     Indication: ANAESTHESIA
     Dosage: 50 MG
     Route: 042
     Dates: start: 20120426
  17. MYCOPHENOLATE MOFETIL. [Suspect]
     Active Substance: MYCOPHENOLATE MOFETIL
     Indication: RENAL TRANSPLANT
     Dosage: 1000 MG, TOTAL DOSE,   , ORAL
     Route: 048
     Dates: start: 20120426, end: 20120426
  18. VITAMIN D /00107901/ [Concomitant]
     Active Substance: ERGOCALCIFEROL
  19. METHYLPREDNISOLONE ACETATE. [Concomitant]
     Active Substance: METHYLPREDNISOLONE ACETATE

REACTIONS (9)
  - Encephalopathy [None]
  - Post procedural complication [None]
  - Status epilepticus [None]
  - Bradycardia [None]
  - Pyrexia [None]
  - Blood creatine phosphokinase increased [None]
  - Renal transplant [None]
  - Intracranial pressure increased [None]
  - Withdrawal syndrome [None]

NARRATIVE: CASE EVENT DATE: 20120426
